FAERS Safety Report 7890704-0 (Version None)
Quarter: 2011Q4

REPORT INFORMATION
  Report Type: 
  Country: None (occurrence: None)
  Receive Date: 20111103
  Receipt Date: 20110725
  Transmission Date: 20120403
  Serious: No
  Sender: FDA-Public Use
  Company Number: US-AMGEN-USASP2011037617

PATIENT
  Age: 48 Year
  Sex: Female

DRUGS (12)
  1. CYMBALTA [Concomitant]
     Dosage: 20 MG, UNK
  2. VITAMIN D [Concomitant]
     Dosage: 1000 UNIT, UNK
  3. ENBREL [Suspect]
     Indication: PRODUCT USED FOR UNKNOWN INDICATION
     Dosage: 25 MG, 2 TIMES/WK
     Route: 058
  4. METHOTREXATE [Concomitant]
     Dosage: 2.5 MG, UNK
  5. SYNTHROID [Concomitant]
     Dosage: 1 MG, UNK
  6. FOLIC ACID [Concomitant]
     Dosage: 1 MG, UNK
  7. CALCIUM                            /00177201/ [Concomitant]
     Dosage: UNK
  8. PLAVIX [Concomitant]
     Dosage: 75 MG, UNK
  9. RANITIDINE [Concomitant]
     Dosage: 150 MG, UNK
  10. COREG CR [Concomitant]
     Dosage: 2.5 MG, UNK
  11. PREDNISONE [Concomitant]
     Dosage: 1 MG, UNK
  12. VICODIN [Concomitant]
     Dosage: UNK

REACTIONS (1)
  - CONTUSION [None]
